FAERS Safety Report 9265816 (Version 2)
Quarter: 2013Q2

REPORT INFORMATION
  Report Type: Report from Study
  Country: US (occurrence: US)
  Receive Date: 20130501
  Receipt Date: 20130515
  Transmission Date: 20140414
  Serious: Yes (Other)
  Sender: FDA-Public Use
  Company Number: US-ACTELION-A-US2013-82539

PATIENT
  Age: 46 Year
  Sex: Female

DRUGS (3)
  1. VELETRI [Suspect]
     Indication: PULMONARY ARTERIAL HYPERTENSION
     Dosage: 10 NG/KG, PER MIN
     Route: 042
     Dates: start: 20130415
  2. SILDENAFIL [Concomitant]
  3. COUMADIN [Concomitant]

REACTIONS (5)
  - Brain natriuretic peptide increased [Recovered/Resolved]
  - Dysarthria [Unknown]
  - Oedema [Unknown]
  - Weight increased [Unknown]
  - Headache [Unknown]
